FAERS Safety Report 10067645 (Version 1)
Quarter: 2014Q2

REPORT INFORMATION
  Report Type: Spontaneous
  Country: US (occurrence: None)
  Receive Date: 20140407
  Receipt Date: 20140407
  Transmission Date: 20141212
  Serious: Yes (Hospitalization)
  Sender: FDA-Public Use
  Company Number: 2014-US-003258

PATIENT
  Age: 66 Year
  Sex: Female

DRUGS (7)
  1. PRIALT [Suspect]
     Indication: INTERVERTEBRAL DISC DISORDER
     Route: 037
  2. PRIALT [Suspect]
     Indication: MYELOPATHY
     Route: 037
  3. PANTOPRAZOLE (PANTOPRAZOLE SODIUM SESUIHYDRATE) [Concomitant]
  4. LISINOPRIL (LISINOPRIL) [Concomitant]
  5. INSULIN (INSULIN PORCINE) [Concomitant]
  6. CARVEDILOL (CARVEDILOL) [Concomitant]
  7. GEMFIBROZIL (GEMFIBROZIL) [Concomitant]

REACTIONS (1)
  - Pneumonia [None]
